FAERS Safety Report 8551082-7 (Version None)
Quarter: 2012Q3

REPORT INFORMATION
  Report Type: 
  Country: None (occurrence: None)
  Receive Date: 20120719
  Receipt Date: 20120719
  Transmission Date: 20120928
  Serious: Yes (Other)
  Sender: FDA-Public Use
  Company Number: None

PATIENT
  Sex: Female

DRUGS (2)
  1. SOMATULINE DEPOT [Suspect]
     Indication: ACROMEGALY
     Dosage: 120MG/0.5ML PFS Q289 DAYS SQ
     Dates: start: 20120206
  2. SOMATULINE DEPOT [Suspect]
     Indication: GIGANTISM
     Dosage: 120MG/0.5ML PFS Q289 DAYS SQ
     Dates: start: 20120206

REACTIONS (1)
  - SCIATICA [None]
